FAERS Safety Report 17065478 (Version 2)
Quarter: 2020Q1

REPORT INFORMATION
  Report Type: Report from Study
  Country: US (occurrence: US)
  Receive Date: 20191122
  Receipt Date: 20200130
  Transmission Date: 20200409
  Serious: Yes (Hospitalization)
  Sender: FDA-Public Use
  Company Number: US-BAYER-2019-189629

PATIENT
  Age: 99 Year
  Sex: Male

DRUGS (4)
  1. STIVARGA [Suspect]
     Active Substance: REGORAFENIB
     Indication: HEPATOCELLULAR CARCINOMA
     Dosage: 80 MG, QD
     Route: 048
     Dates: end: 20191219
  2. STIVARGA [Suspect]
     Active Substance: REGORAFENIB
     Indication: HEPATOCELLULAR CARCINOMA
     Dosage: 80 MG, QD
     Route: 048
     Dates: start: 20191118
  3. STIVARGA [Suspect]
     Active Substance: REGORAFENIB
     Indication: HEPATOCELLULAR CARCINOMA
     Dosage: DAILY DOSE 120 MG, FOR 21 DAYS FOR 28 DAY CYCLE
     Route: 048
     Dates: start: 20191004, end: 20191028
  4. STIVARGA [Suspect]
     Active Substance: REGORAFENIB
     Indication: HEPATOCELLULAR CARCINOMA
     Dosage: 160 MG DAILY
     Route: 048
     Dates: start: 20191203, end: 201912

REACTIONS (13)
  - Urinary retention [Recovered/Resolved]
  - Dysphonia [Not Recovered/Not Resolved]
  - Hyponatraemia [Recovered/Resolved]
  - Pyrexia [Recovered/Resolved]
  - Asthenia [Recovered/Resolved]
  - Hyponatraemia [None]
  - Hypertension [Not Recovered/Not Resolved]
  - Off label use [None]
  - Confusional state [None]
  - Contusion [Not Recovered/Not Resolved]
  - Thyroid disorder [Recovered/Resolved]
  - Peripheral swelling [Not Recovered/Not Resolved]
  - Pyrexia [None]

NARRATIVE: CASE EVENT DATE: 201910
